FAERS Safety Report 12496035 (Version 1)
Quarter: 2016Q2

REPORT INFORMATION
  Report Type: Spontaneous
  Country: JP (occurrence: JP)
  Receive Date: 20160624
  Receipt Date: 20160624
  Transmission Date: 20160815
  Serious: Yes (Other)
  Sender: FDA-Public Use
  Company Number: JP-AMGEN-JPNSP2016080383

PATIENT
  Sex: Female

DRUGS (2)
  1. ENBREL [Suspect]
     Active Substance: ETANERCEPT
     Dosage: UNK, ONCE EVERY TWO WEEKS
     Route: 065
     Dates: start: 20150716
  2. ENBREL [Suspect]
     Active Substance: ETANERCEPT
     Indication: PRODUCT USED FOR UNKNOWN INDICATION
     Dosage: UNK UNK, WEEKLY
     Route: 058

REACTIONS (7)
  - Ear infection [Unknown]
  - Pyrexia [Unknown]
  - Tooth infection [Unknown]
  - Peripheral swelling [Unknown]
  - Off label use [Unknown]
  - Purulent discharge [Unknown]
  - Malaise [Unknown]

NARRATIVE: CASE EVENT DATE: 20160609
